FAERS Safety Report 7965030-1 (Version None)
Quarter: 2011Q4

REPORT INFORMATION
  Report Type: 
  Country: None (occurrence: None)
  Receive Date: 20111205
  Receipt Date: 20111122
  Transmission Date: 20120403
  Serious: Yes (Other)
  Sender: FDA-Public Use
  Company Number: FK201102792

PATIENT
  Sex: Male

DRUGS (3)
  1. CISPLATIN [Suspect]
     Indication: OESOPHAGEAL CANCER METASTATIC
     Dosage: 5 MG, 1 D
     Dates: start: 20060901
  2. DOCETAXEL [Suspect]
     Indication: METASTASES TO LIVER
     Dosage: 70 MG/M2
     Dates: start: 20071201
  3. FLUOROURACIL [Suspect]
     Indication: OESOPHAGEAL CANCER METASTATIC
     Dosage: 250 MG, 1 D
     Dates: start: 20060901

REACTIONS (3)
  - NEUTROPENIA [None]
  - DECREASED APPETITE [None]
  - PNEUMONIA [None]
